FAERS Safety Report 5814051-3 (Version None)
Quarter: 2008Q3

REPORT INFORMATION
  Report Type: 
  Country: None (occurrence: None)
  Receive Date: 20080717
  Receipt Date: 20080714
  Transmission Date: 20090109
  Serious: Yes (Other)
  Sender: FDA-Public Use
  Company Number: DE-BOEHRINGER INGELHEIM GMBH, GERMANY-2008-DE-04079DE

PATIENT
  Age: 78 Year
  Sex: Male
  Weight: 67 kg

DRUGS (2)
  1. SPIRIVA [Suspect]
     Route: 055
  2. SPIRIVA [Suspect]
     Route: 055

REACTIONS (2)
  - HAEMOPTYSIS [None]
  - OROPHARYNGEAL PAIN [None]
